FAERS Safety Report 8549466-6 (Version None)
Quarter: 2012Q3

REPORT INFORMATION
  Report Type: 
  Country: None (occurrence: None)
  Receive Date: 20120730
  Receipt Date: 20120720
  Transmission Date: 20120928
  Serious: Yes (Other)
  Sender: FDA-Public Use
  Company Number: JP-VERTEX PHARMACEUTICALS INC.-AE-2012-006306

PATIENT
  Age: 60 Year
  Sex: Male

DRUGS (22)
  1. TELAVIC (TELAPREVIR) [Suspect]
     Indication: HEPATITIS C
     Route: 048
     Dates: start: 20120125, end: 20120417
  2. RIBAVIRIN [Concomitant]
     Route: 048
     Dates: start: 20120206, end: 20120214
  3. RIBAVIRIN [Concomitant]
     Route: 048
     Dates: start: 20120404
  4. METFORMIN HCL [Concomitant]
     Route: 048
  5. PEG-INTRON [Concomitant]
     Route: 058
     Dates: start: 20120229, end: 20120314
  6. RIBAVIRIN [Concomitant]
     Indication: HEPATITIS C
     Route: 048
     Dates: start: 20120125, end: 20120129
  7. RIBAVIRIN [Concomitant]
     Route: 048
     Dates: start: 20120307
  8. GASMOTIN [Concomitant]
     Route: 048
  9. PEG-INTRON [Concomitant]
     Route: 058
     Dates: start: 20120523
  10. RIBAVIRIN [Concomitant]
     Route: 048
     Dates: start: 20120314, end: 20120403
  11. AMARYL [Concomitant]
     Route: 048
  12. PEG-INTRON [Concomitant]
     Route: 058
     Dates: start: 20120222, end: 20120222
  13. PEG-INTRON [Concomitant]
     Route: 058
     Dates: start: 20120516, end: 20120516
  14. ALLOPURINOL [Concomitant]
     Route: 048
  15. OMEPRAZOLE [Concomitant]
     Route: 048
     Dates: start: 20120125
  16. PEG-INTRON [Concomitant]
     Route: 058
     Dates: start: 20120215, end: 20120215
  17. PEG-INTRON [Concomitant]
     Route: 058
     Dates: start: 20120201, end: 20120208
  18. RIBAVIRIN [Concomitant]
     Route: 048
     Dates: start: 20120130, end: 20120205
  19. RIBAVIRIN [Concomitant]
     Route: 048
     Dates: start: 20120215, end: 20120306
  20. PEG-INTRON [Concomitant]
     Indication: HEPATITIS C
     Route: 058
     Dates: start: 20120125, end: 20120125
  21. PEG-INTRON [Concomitant]
     Route: 058
     Dates: start: 20120321, end: 20120509
  22. JANUVIA [Concomitant]
     Route: 048

REACTIONS (2)
  - PLATELET COUNT DECREASED [None]
  - NEUTROPHIL COUNT DECREASED [None]
